FAERS Safety Report 20617958 (Version 1)
Quarter: 2022Q1

REPORT INFORMATION
  Report Type: Spontaneous
  Country: CN (occurrence: CN)
  Receive Date: 20220321
  Receipt Date: 20220321
  Transmission Date: 20220423
  Serious: Yes (Other)
  Sender: FDA-Public Use
  Company Number: CN-NAPPMUNDI-GBR-2022-0095880

PATIENT
  Age: 64 Year
  Sex: Male
  Weight: 50 kg

DRUGS (1)
  1. OXYCODONE HYDROCHLORIDE [Suspect]
     Active Substance: OXYCODONE HYDROCHLORIDE
     Indication: Pain
     Dosage: 10 MG, EVERY 12 HOURS
     Route: 048
     Dates: start: 20211213, end: 20220127

REACTIONS (4)
  - Hallucination [Unknown]
  - Altered state of consciousness [Unknown]
  - Constipation [Unknown]
  - Mental disorder [Unknown]

NARRATIVE: CASE EVENT DATE: 20211201
